FAERS Safety Report 8924456 (Version 2)
Quarter: 2012Q4

REPORT INFORMATION
  Report Type: 
  Country: GB (occurrence: GB)
  Receive Date: 20121126
  Receipt Date: 20121128
  Transmission Date: 20130627
  Serious: Yes (Death, Life-Threatening, Other)
  Sender: FDA-Public Use
  Company Number: GB-PFIZER INC-GB-WYE-G00718207

PATIENT
  Age: 65 Year
  Sex: Female
  Weight: 75 kg

DRUGS (12)
  1. IBUPROFEN [Suspect]
     Indication: DRUG USE FOR UNKNOWN INDICATION
     Dosage: 1200 mg unknown frequency
     Route: 048
     Dates: start: 20071023, end: 20071023
  2. ACETYLSALICYLIC ACID [Suspect]
     Indication: PRODUCT USED FOR UNKNOWN INDICATION
     Dosage: 75 mg unknown frequency
     Route: 048
     Dates: start: 20060324
  3. CHLORPROMAZINE [Concomitant]
     Dosage: UNK
     Route: 048
     Dates: start: 19951120
  4. CO-CODAMOL [Concomitant]
     Dosage: Unspecified
     Route: 048
     Dates: start: 20071112
  5. DIAZEPAM [Concomitant]
     Dosage: 15 mg, UNK
     Route: 048
     Dates: start: 20061206
  6. DOSULEPIN [Concomitant]
     Dosage: UNK
     Route: 048
     Dates: start: 20061027
  7. FLUPHENAZINE DECANOATE [Concomitant]
     Dosage: 100 mg, every 3 weeks
     Route: 030
     Dates: start: 20030123
  8. LANSOPRAZOLE [Concomitant]
     Dosage: UNK
     Route: 048
     Dates: start: 20071023
  9. LEVOTHYROXINE [Concomitant]
     Dosage: 75 MICROGRAMS
     Route: 048
     Dates: start: 20040101
  10. PROCYCLIDINE [Concomitant]
     Dosage: 15 mg
     Route: 048
     Dates: start: 20071115
  11. QUININE [Concomitant]
     Dosage: 300 mg
     Route: 048
     Dates: start: 20070806
  12. DEPIXOL [Concomitant]

REACTIONS (2)
  - Perforated ulcer [Fatal]
  - Gastrointestinal haemorrhage [Fatal]
